FAERS Safety Report 9753796 (Version 1)
Quarter: 2013Q4

REPORT INFORMATION
  Report Type: Spontaneous
  Country: US (occurrence: US)
  Receive Date: 20131213
  Receipt Date: 20131213
  Transmission Date: 20140711
  Serious: No
  Sender: FDA-Public Use
  Company Number: US-GILEAD-2010-0027106

PATIENT
  Sex: Female

DRUGS (9)
  1. LETAIRIS [Suspect]
     Indication: PULMONARY ARTERIAL HYPERTENSION
  2. TRIAMP/HCTZ [Concomitant]
  3. FLOVENT [Concomitant]
  4. PREDNISONE [Concomitant]
  5. LOVAZA [Concomitant]
  6. BONIVA [Concomitant]
  7. OMEPRAZOLE [Concomitant]
  8. ASA [Concomitant]
  9. MULTIVITAMIN [Concomitant]

REACTIONS (1)
  - Local swelling [Recovering/Resolving]
